FAERS Safety Report 7211666-5 (Version None)
Quarter: 2011Q1

REPORT INFORMATION
  Report Type: 
  Country: None (occurrence: None)
  Receive Date: 20110105
  Receipt Date: 20101206
  Transmission Date: 20110831
  Serious: No
  Sender: FDA-Public Use
  Company Number: US-BAYER-2011-000557

PATIENT
  Sex: Female
  Weight: 59 kg

DRUGS (3)
  1. LIPITOR [Concomitant]
  2. ALEVE (CAPLET) [Suspect]
     Indication: PAIN
     Dosage: 2 DOSES DAILY, PRN
     Route: 048
     Dates: end: 20101206
  3. CARVEDILOL [Concomitant]

REACTIONS (1)
  - PAIN [None]
